FAERS Safety Report 5337699-1 (Version None)
Quarter: 2007Q2

REPORT INFORMATION
  Report Type: 
  Country: None (occurrence: None)
  Receive Date: 20070315
  Receipt Date: 20060215
  Transmission Date: 20071010
  Serious: Yes (Hospitalization)
  Sender: FDA-Public Use
  Company Number: PHEH2005US12472

PATIENT
  Age: 46 Year
  Sex: Female

DRUGS (2)
  1. TRILEPTAL [Suspect]
     Indication: CONVULSION
     Dosage: 300 MG, BID, ORAL
     Route: 048
     Dates: start: 20050701, end: 20050928
  2. NEURONTIN [Concomitant]

REACTIONS (5)
  - DIZZINESS [None]
  - GAIT DISTURBANCE [None]
  - GRAND MAL CONVULSION [None]
  - RESPIRATORY ARREST [None]
  - TREMOR [None]
